FAERS Safety Report 5701301-7 (Version None)
Quarter: 2008Q2

REPORT INFORMATION
  Report Type: 
  Country: None (occurrence: None)
  Receive Date: 20080410
  Receipt Date: 20080331
  Transmission Date: 20081010
  Serious: Yes (Hospitalization)
  Sender: FDA-Public Use
  Company Number: FR-PFIZER INC-2008028851

PATIENT
  Sex: Male

DRUGS (3)
  1. ZARONTIN SYRUP [Suspect]
     Dosage: TEXT:5 DF
     Route: 048
     Dates: start: 20070401, end: 20080129
  2. URBANYL [Suspect]
     Route: 048
  3. DEPAKENE [Suspect]
     Route: 048

REACTIONS (2)
  - BALANCE DISORDER [None]
  - HYPERSOMNIA [None]
